FAERS Safety Report 6806054-7 (Version None)
Quarter: 2010Q2

REPORT INFORMATION
  Report Type: 
  Country: None (occurrence: None)
  Receive Date: 20100629
  Receipt Date: 20080218
  Transmission Date: 20101027
  Serious: No
  Sender: FDA-Public Use
  Company Number: US-PFIZER INC-2007081459

PATIENT
  Sex: Female
  Weight: 73.48 kg

DRUGS (9)
  1. ANSAID [Suspect]
     Indication: HEADACHE
     Route: 048
  2. ANSAID [Suspect]
     Indication: ARTHRITIS
  3. ANSAID [Suspect]
     Indication: OSTEOARTHRITIS
  4. ANSAID [Suspect]
  5. MOBIC [Suspect]
     Indication: OSTEOARTHRITIS
     Dates: start: 20070912
  6. SYNTHROID [Concomitant]
  7. LISINOPRIL [Concomitant]
  8. ACTONEL [Concomitant]
  9. PREMARIN [Concomitant]

REACTIONS (4)
  - DRUG INEFFECTIVE [None]
  - HEADACHE [None]
  - HYPERLIPIDAEMIA [None]
  - OSTEOARTHRITIS [None]
